FAERS Safety Report 7560865-1 (Version None)
Quarter: 2011Q2

REPORT INFORMATION
  Report Type: 
  Country: None (occurrence: None)
  Receive Date: 20110621
  Receipt Date: 20110110
  Transmission Date: 20111010
  Serious: No
  Sender: FDA-Public Use
  Company Number: US-ASTRAZENECA-2010SE27174

PATIENT
  Age: 80 Year
  Sex: Male

DRUGS (10)
  1. ACCUPRIL [Suspect]
     Indication: ARRHYTHMIA
     Route: 065
     Dates: start: 20100528
  2. BYSTOLIC [Suspect]
     Indication: ARRHYTHMIA
     Route: 048
     Dates: start: 20091001, end: 20091101
  3. BYSTOLIC [Suspect]
     Route: 048
     Dates: start: 20101228
  4. LISINOPRIL [Suspect]
     Indication: ARRHYTHMIA
     Route: 048
     Dates: start: 20100401, end: 20100401
  5. BYSTOLIC [Suspect]
     Route: 048
     Dates: start: 20100522
  6. ASPIRIN [Concomitant]
  7. ATACAND [Suspect]
     Indication: ARRHYTHMIA
     Route: 048
     Dates: start: 20100401
  8. BYSTOLIC [Suspect]
     Route: 048
     Dates: start: 20101001
  9. BYSTOLIC [Suspect]
     Route: 048
     Dates: start: 20091101, end: 20100521
  10. LUNESTA [Concomitant]
     Indication: INSOMNIA

REACTIONS (5)
  - TREMOR [None]
  - DIZZINESS [None]
  - CHEST PAIN [None]
  - HEADACHE [None]
  - ASTHENIA [None]
